FAERS Safety Report 9202126 (Version 1)
Quarter: 2013Q1

REPORT INFORMATION
  Report Type: Spontaneous
  Country: GB (occurrence: None)
  Receive Date: 20130328
  Receipt Date: 20130328
  Transmission Date: 20140127
  Serious: Yes (Other)
  Sender: FDA-Public Use
  Company Number: GB-DEXPHARM-20130118

PATIENT
  Age: 54 Year
  Sex: Male

DRUGS (6)
  1. OMEPRAZOLE [Suspect]
     Indication: DYSPEPSIA
     Route: 048
     Dates: start: 201212, end: 201301
  2. ASPIRIN [Concomitant]
  3. BISOPROLOL [Concomitant]
  4. DILTIAZEM HYDROCHLORIDE [Concomitant]
  5. LISINOPRIL [Concomitant]
  6. SIMVASTATIN [Concomitant]

REACTIONS (4)
  - Discomfort [None]
  - Hypoaesthesia [None]
  - Paraesthesia oral [None]
  - Hypoaesthesia oral [None]
